FAERS Safety Report 9173194 (Version 1)
Quarter: 2013Q1

REPORT INFORMATION
  Report Type: Spontaneous
  Country: NO (occurrence: None)
  Receive Date: 20130314
  Receipt Date: 20130314
  Transmission Date: 20140127
  Serious: Yes (Hospitalization)
  Sender: FDA-Public Use
  Company Number: ABR_00869_2013

PATIENT
  Sex: Female

DRUGS (10)
  1. ERYTHROMYCIN (ERYTHROMYCIN) [Suspect]
     Indication: BRONCHITIS
     Dosage: (DF)
     Route: 048
     Dates: start: 201212
  2. SIMVASTATIN (SIMVASTATIN) [Suspect]
     Indication: PRODUCT USED FOR UNKNOWN INDICATION
     Dosage: (DF)
     Route: 048
     Dates: end: 201301
  3. MAREVAN [Concomitant]
  4. METOPROLOL TARTRATE [Concomitant]
  5. ATACAND PLUS [Concomitant]
  6. FOSAMAX [Concomitant]
  7. PREDNISOLONE /00016204/ [Concomitant]
  8. LEKOVIT CA [Concomitant]
  9. ZANIDIP [Concomitant]
  10. FURIX [Concomitant]

REACTIONS (7)
  - Myalgia [None]
  - Drug interaction [None]
  - General physical health deterioration [None]
  - Drug level increased [None]
  - Blood creatine phosphokinase increased [None]
  - Hepatic enzyme increased [None]
  - Renal failure [None]
